FAERS Safety Report 24691232 (Version 2)
Quarter: 2025Q2

REPORT INFORMATION
  Report Type: Report from Study
  Country: DE (occurrence: DE)
  Receive Date: 20241203
  Receipt Date: 20250606
  Transmission Date: 20250717
  Serious: Yes (Life-Threatening)
  Sender: MYLAN
  Company Number: DE-MYLANLABS-2024M1107350

PATIENT
  Sex: Female

DRUGS (4)
  1. GLATIRAMER [Suspect]
     Active Substance: GLATIRAMER
     Indication: Multiple sclerosis
     Dosage: 40 MILLIGRAM PER MILLIMETER, 3XW
     Dates: start: 20240401, end: 2024
  2. GLATIRAMER [Suspect]
     Active Substance: GLATIRAMER
     Dosage: 40 MILLIGRAM PER MILLIMETER, 3XW
     Route: 058
     Dates: start: 20240401, end: 2024
  3. GLATIRAMER [Suspect]
     Active Substance: GLATIRAMER
     Dosage: 40 MILLIGRAM PER MILLIMETER, 3XW
     Route: 058
     Dates: start: 20240401, end: 2024
  4. GLATIRAMER [Suspect]
     Active Substance: GLATIRAMER
     Dosage: 40 MILLIGRAM PER MILLIMETER, 3XW
     Dates: start: 20240401, end: 2024

REACTIONS (1)
  - Lymphoma [Unknown]

NARRATIVE: CASE EVENT DATE: 20240701
